FAERS Safety Report 4645707-6 (Version None)
Quarter: 2005Q2

REPORT INFORMATION
  Report Type: 
  Country: None (occurrence: None)
  Receive Date: 20050427
  Receipt Date: 20050415
  Transmission Date: 20051028
  Serious: Yes (Hospitalization)
  Sender: FDA-Public Use
  Company Number: FR-JNJFOC-20050403698

PATIENT
  Age: 30 Year
  Sex: Male

DRUGS (4)
  1. REMICADE [Suspect]
     Indication: ANKYLOSING SPONDYLITIS
     Dosage: 5MK/KG
     Route: 042
  2. CORTANCYL [Concomitant]
     Dosage: 0.5-1 MG/KG = 30-60 MG QD
  3. CORTANCYL [Concomitant]
     Indication: UVEITIS
  4. SULFASALAZINE [Concomitant]

REACTIONS (1)
  - TUBERCULOSIS [None]
